FAERS Safety Report 5136605-2 (Version None)
Quarter: 2006Q4

REPORT INFORMATION
  Report Type: 
  Country: None (occurrence: None)
  Receive Date: 20061027
  Receipt Date: 20061017
  Transmission Date: 20070319
  Serious: Yes (Disabling)
  Sender: FDA-Public Use
  Company Number: FR-ABBOTT-06P-056-0347296-00

PATIENT
  Age: 47 Year
  Sex: Female

DRUGS (6)
  1. HUMIRA [Suspect]
     Indication: DRUG USE FOR UNKNOWN INDICATION
     Route: 058
     Dates: start: 20051220
  2. HYDROXYCHLOROQUINE SULFATE [Concomitant]
     Indication: DRUG USE FOR UNKNOWN INDICATION
  3. GOLD SALTS [Concomitant]
     Indication: DRUG USE FOR UNKNOWN INDICATION
  4. LEFLUNOMIDE [Concomitant]
     Indication: DRUG USE FOR UNKNOWN INDICATION
  5. METHOTREXATE SODIUM [Concomitant]
     Indication: DRUG USE FOR UNKNOWN INDICATION
     Route: 048
  6. LEVOTHYROXINE SODIUM [Concomitant]
     Indication: DRUG USE FOR UNKNOWN INDICATION

REACTIONS (7)
  - BONE DISORDER [None]
  - GINGIVAL DISORDER [None]
  - GINGIVITIS [None]
  - OSTEONECROSIS [None]
  - SENSORY DISTURBANCE [None]
  - TOOTH DISORDER [None]
  - URTICARIA [None]
